FAERS Safety Report 7033852-X (Version None)
Quarter: 2010Q4

REPORT INFORMATION
  Report Type: 
  Country: None (occurrence: None)
  Receive Date: 20101007
  Receipt Date: 20100930
  Transmission Date: 20110411
  Serious: Yes (Other)
  Sender: FDA-Public Use
  Company Number: ES-AMGEN-QUU439583

PATIENT
  Age: 48 Year
  Sex: Male
  Weight: 72 kg

DRUGS (3)
  1. ENBREL [Suspect]
     Indication: PSORIATIC ARTHROPATHY
     Route: 058
     Dates: start: 20020101, end: 20100910
  2. PEGASYS [Interacting]
     Indication: PRODUCT USED FOR UNKNOWN INDICATION
     Route: 058
     Dates: start: 20100429
  3. RIBAVIRIN [Concomitant]
     Indication: HEPATITIS
     Dates: start: 20100429

REACTIONS (3)
  - DRUG INTERACTION [None]
  - HEPATIC NEOPLASM MALIGNANT [None]
  - TUBERCULOSIS [None]
